APPROVED DRUG PRODUCT: NITROGLYCERIN
Active Ingredient: NITROGLYCERIN
Strength: 0.6MG
Dosage Form/Route: TABLET;SUBLINGUAL
Application: A203693 | Product #003
Applicant: ACTAVIS LABORATORIES FL INC
Approved: Oct 16, 2017 | RLD: No | RS: No | Type: DISCN